FAERS Safety Report 6424959-6 (Version None)
Quarter: 2009Q4

REPORT INFORMATION
  Report Type: 
  Country: None (occurrence: None)
  Receive Date: 20091103
  Receipt Date: 20091026
  Transmission Date: 20100525
  Serious: Yes (Other)
  Sender: FDA-Public Use
  Company Number: DE-ELI_LILLY_AND_COMPANY-DE200910007457

PATIENT
  Sex: Male

DRUGS (9)
  1. BYETTA [Suspect]
     Dosage: 5 UG, 2/D
     Dates: start: 20091021, end: 20091025
  2. METFORMIN HCL [Concomitant]
     Dosage: 1000 D/F, UNK
  3. AMIODARONE HYDROCHLORIDE [Concomitant]
     Dosage: 200 MG, UNK
  4. LYRICA [Concomitant]
     Dosage: 150 MG, UNK
  5. ERGENYL CHRONO [Concomitant]
  6. L-THYROXIN [Concomitant]
     Dosage: 125 UG, UNK
  7. OMEPRAZOLE [Concomitant]
  8. MARCUMAR [Concomitant]
  9. SIMVASTATIN [Concomitant]

REACTIONS (4)
  - BLOOD PRESSURE INCREASED [None]
  - DYSPNOEA [None]
  - ERYTHEMA [None]
  - HEART RATE INCREASED [None]
